FAERS Safety Report 12724000 (Version 1)
Quarter: 2016Q3

REPORT INFORMATION
  Report Type: Spontaneous
  Country: US (occurrence: US)
  Receive Date: 20160907
  Receipt Date: 20160907
  Transmission Date: 20161109
  Serious: Yes (Hospitalization)
  Sender: FDA-Public Use
  Company Number: None

PATIENT
  Age: 37 Year
  Sex: Female
  Weight: 65.25 kg

DRUGS (2)
  1. TOPAMAX [Suspect]
     Active Substance: TOPIRAMATE
     Indication: MIGRAINE
     Route: 048
     Dates: start: 20160128, end: 20160810
  2. HYDROCODONE [Concomitant]
     Active Substance: HYDROCODONE

REACTIONS (11)
  - Weight decreased [None]
  - Feeling abnormal [None]
  - Fatigue [None]
  - Visual impairment [None]
  - Depression [None]
  - Impaired work ability [None]
  - Diarrhoea [None]
  - Amnesia [None]
  - Vomiting [None]
  - Menstrual disorder [None]
  - Abdominal pain upper [None]

NARRATIVE: CASE EVENT DATE: 20160313
